FAERS Safety Report 4541078-4 (Version None)
Quarter: 2004Q4

REPORT INFORMATION
  Report Type: 
  Country: None (occurrence: None)
  Receive Date: 20041228
  Receipt Date: 20041223
  Transmission Date: 20050328
  Serious: Yes (Hospitalization)
  Sender: FDA-Public Use
  Company Number: F01200403620

PATIENT
  Age: 78 Year
  Sex: Male

DRUGS (2)
  1. (OXALIPLATIN) - SOLUTION [Suspect]
     Indication: BILE DUCT CANCER STAGE IV
     Dosage: 270 MG Q3W
     Route: 042
     Dates: start: 20041105, end: 20041105
  2. (CAPECITABINE) - TABLET [Suspect]
     Dosage: 1500 TWICE A DAY FROM DAY 1 TO DAY 13, Q3W, ORAL
     Route: 048
     Dates: start: 20041105

REACTIONS (4)
  - BLOOD ALKALINE PHOSPHATASE INCREASED [None]
  - CONFUSIONAL STATE [None]
  - PYREXIA [None]
  - URINARY TRACT INFECTION [None]
